FAERS Safety Report 5375338-4 (Version None)
Quarter: 2007Q2

REPORT INFORMATION
  Report Type: 
  Country: None (occurrence: None)
  Receive Date: 20070629
  Receipt Date: 20070626
  Transmission Date: 20071010
  Serious: Yes (Other)
  Sender: FDA-Public Use
  Company Number: US-ASTRAZENECA-2007UW15111

PATIENT
  Sex: Male

DRUGS (1)
  1. ZESTRIL [Suspect]
     Route: 048

REACTIONS (3)
  - DIABETES MELLITUS [None]
  - GLAUCOMA [None]
  - HYPERTENSION [None]
